FAERS Safety Report 5659350-3 (Version None)
Quarter: 2008Q1

REPORT INFORMATION
  Report Type: 
  Country: None (occurrence: None)
  Receive Date: 20080311
  Receipt Date: 20080306
  Transmission Date: 20080703
  Serious: Yes (Other)
  Sender: FDA-Public Use
  Company Number: FR-JNJFOC-20080101336

PATIENT
  Sex: Male
  Weight: 91 kg

DRUGS (4)
  1. RISPERDAL [Suspect]
     Route: 048
  2. RISPERDAL [Suspect]
     Indication: SCHIZOAFFECTIVE DISORDER
     Route: 048
  3. DEPAMIDE [Concomitant]
     Indication: AFFECTIVE DISORDER
     Route: 048
  4. ABILIFY [Concomitant]
     Indication: SCHIZOAFFECTIVE DISORDER
     Route: 048

REACTIONS (2)
  - EJACULATION FAILURE [None]
  - WEIGHT DECREASED [None]
